FAERS Safety Report 6742114-7 (Version None)
Quarter: 2010Q2

REPORT INFORMATION
  Report Type: 
  Country: None (occurrence: None)
  Receive Date: 20100526
  Receipt Date: 20100514
  Transmission Date: 20101027
  Serious: Yes (Other)
  Sender: FDA-Public Use
  Company Number: US-WYE-H15177210

PATIENT
  Sex: Female
  Weight: 58.57 kg

DRUGS (2)
  1. TYGACIL [Suspect]
     Indication: STAPHYLOCOCCAL INFECTION
     Dosage: 50 MG VIAL DAILY
     Route: 042
     Dates: start: 20100401, end: 20100401
  2. EXTRA STRENGTH TYLENOL PM [Concomitant]
     Dosage: UNKNOWN

REACTIONS (5)
  - DIARRHOEA [None]
  - LETHARGY [None]
  - NAUSEA [None]
  - VOMITING [None]
  - WEIGHT DECREASED [None]
